FAERS Safety Report 18233211 (Version 1)
Quarter: 2020Q3

REPORT INFORMATION
  Report Type: Spontaneous
  Country: NL (occurrence: NL)
  Receive Date: 20200904
  Receipt Date: 20200904
  Transmission Date: 20201103
  Serious: Yes (Other)
  Sender: FDA-Public Use
  Company Number: NL-MYLANLABS-2020M1076070

PATIENT
  Sex: Male

DRUGS (4)
  1. VENLAFAXINE [Suspect]
     Active Substance: VENLAFAXINE HYDROCHLORIDE
     Indication: DEPRESSION
     Dosage: 1X PER DAY 1 PIECE
     Dates: start: 20200123
  2. MACROGOL [Concomitant]
     Active Substance: POLYETHYLENE GLYCOLS
     Dosage: POEDER VOOR DRANK
  3. IBUPROFEN. [Concomitant]
     Active Substance: IBUPROFEN
     Dosage: TABLET, 600 MG (MILLIGRAM)
  4. TAMSULOSINE                        /01280301/ [Concomitant]
     Active Substance: TAMSULOSIN
     Dosage: TABLET MET GEREGULEERDE AFGIFTE, 0,4 MG (MILLIGRAM)

REACTIONS (1)
  - Erectile dysfunction [Not Recovered/Not Resolved]
